FAERS Safety Report 7434636-0 (Version None)
Quarter: 2011Q2

REPORT INFORMATION
  Report Type: 
  Country: None (occurrence: None)
  Receive Date: 20110425
  Receipt Date: 20110413
  Transmission Date: 20111010
  Serious: Yes (Hospitalization)
  Sender: FDA-Public Use
  Company Number: FR-BAYER-2011-032532

PATIENT

DRUGS (2)
  1. NEXAVAR [Suspect]
     Indication: HEPATIC NEOPLASM MALIGNANT
     Dosage: 400 MG, BID
  2. NEXAVAR [Suspect]
     Dosage: 400 MG, QD

REACTIONS (4)
  - ASCITES [None]
  - MYALGIA [None]
  - RESPIRATORY DISTRESS [None]
  - PLEURAL EFFUSION [None]
